FAERS Safety Report 8217657-X (Version None)
Quarter: 2012Q1

REPORT INFORMATION
  Report Type: 
  Country: None (occurrence: None)
  Receive Date: 20120315
  Receipt Date: 20120302
  Transmission Date: 20120608
  Serious: Yes (Other)
  Sender: FDA-Public Use
  Company Number: 2012P1009015

PATIENT
  Age: 55 Year
  Sex: Female

DRUGS (1)
  1. PREDNISOLONE [Suspect]
     Indication: VIITH NERVE PARALYSIS

REACTIONS (8)
  - HEPATIC FAILURE [None]
  - GENERAL PHYSICAL HEALTH DETERIORATION [None]
  - ASCITES [None]
  - HEPATITIS B [None]
  - CHOLELITHIASIS [None]
  - HEPATIC NECROSIS [None]
  - PERITONITIS BACTERIAL [None]
  - ENCEPHALOPATHY [None]
